FAERS Safety Report 8811015 (Version 4)
Quarter: 2013Q3

REPORT INFORMATION
  Report Type: Spontaneous
  Country: US (occurrence: US)
  Receive Date: 20120927
  Receipt Date: 20130927
  Transmission Date: 20140515
  Serious: Yes (Hospitalization, Disabling, Other)
  Sender: FDA-Public Use
  Company Number: US-009507513-1205USA04373

PATIENT
  Sex: Female

DRUGS (8)
  1. FOSAMAX [Suspect]
     Indication: OSTEOPOROSIS
     Dosage: 70 MG, QW
     Route: 048
     Dates: end: 2010
  2. FOSAMAX [Suspect]
     Dosage: 10 MG, QD
     Route: 048
     Dates: start: 20000513
  3. ALENDRONATE SODIUM [Suspect]
     Dosage: UNK
     Dates: start: 20080625, end: 201006
  4. ACTONEL [Suspect]
     Indication: OSTEOPOROSIS
     Dosage: UNK, QW
     Route: 048
     Dates: start: 1997, end: 2007
  5. PREDNISONE [Concomitant]
     Indication: POLYMYOSITIS
     Dosage: 5 MG, QOD
     Dates: start: 1970
  6. ENBREL [Concomitant]
     Indication: PSORIASIS
     Dosage: UNK
     Dates: start: 20100428
  7. TAMOXIFEN CITRATE [Concomitant]
     Dosage: UNK
     Dates: start: 1993
  8. THYROID [Concomitant]
     Dosage: UNK
     Dates: start: 1975

REACTIONS (47)
  - Intramedullary rod insertion [Unknown]
  - Bone cancer metastatic [Unknown]
  - Pneumonia [Unknown]
  - Surgery [Unknown]
  - Clostridium difficile infection [Recovered/Resolved]
  - Metastatic neoplasm [Unknown]
  - Femur fracture [Unknown]
  - Rib fracture [Unknown]
  - Clavicle fracture [Unknown]
  - Foot fracture [Unknown]
  - Rib fracture [Unknown]
  - Clavicle fracture [Unknown]
  - Road traffic accident [Unknown]
  - Road traffic accident [Unknown]
  - Psoriasis [Unknown]
  - Meningioma [Unknown]
  - Spinal fracture [Unknown]
  - Polypectomy [Unknown]
  - Hypothyroidism [Unknown]
  - Spinal compression fracture [Unknown]
  - Lymphoedema [Recovering/Resolving]
  - Gait disturbance [Unknown]
  - Nodal osteoarthritis [Unknown]
  - Nodal osteoarthritis [Unknown]
  - Scoliosis [Unknown]
  - Kyphosis [Unknown]
  - Osteoarthritis [Unknown]
  - Nephrolithiasis [Unknown]
  - Osteomalacia [Unknown]
  - Cyst removal [Unknown]
  - Oedema [Unknown]
  - Hypercalcaemia [Unknown]
  - Hypokalaemia [Unknown]
  - Hypertension [Unknown]
  - Transient ischaemic attack [Unknown]
  - Vitreous detachment [Unknown]
  - Rib fracture [Unknown]
  - Rib fracture [Unknown]
  - Fall [Unknown]
  - Foot fracture [Unknown]
  - Clavicle fracture [Unknown]
  - Adverse drug reaction [Unknown]
  - Hyperparathyroidism primary [Unknown]
  - Bone pain [Unknown]
  - Arthralgia [Unknown]
  - Gastrooesophageal reflux disease [Unknown]
  - Pain in extremity [Unknown]
